FAERS Safety Report 25480453 (Version 2)
Quarter: 2025Q3

REPORT INFORMATION
  Report Type: Spontaneous
  Country: US (occurrence: US)
  Receive Date: 20250625
  Receipt Date: 20250725
  Transmission Date: 20251020
  Serious: No
  Sender: CALLIDITAS THERAPEUTICS AB
  Company Number: US-Calliditas-2025CAL01762

PATIENT
  Age: 32 Year
  Sex: Female

DRUGS (4)
  1. TARPEYO [Suspect]
     Active Substance: BUDESONIDE
     Indication: IgA nephropathy
     Dosage: 16MG (4MG CAPSULES) ONCE DAILY
     Route: 048
     Dates: start: 20241203
  2. ESCITALOPRAM [Concomitant]
     Active Substance: ESCITALOPRAM OXALATE
  3. LISINOPRIL [Concomitant]
     Active Substance: LISINOPRIL
  4. VITAMINS NOS [Concomitant]
     Active Substance: VITAMINS

REACTIONS (2)
  - Menstruation irregular [Not Recovered/Not Resolved]
  - Polymenorrhoea [Not Recovered/Not Resolved]

NARRATIVE: CASE EVENT DATE: 20250529
